FAERS Safety Report 25707668 (Version 1)
Quarter: 2025Q3

REPORT INFORMATION
  Report Type: Spontaneous
  Country: EU (occurrence: EU)
  Receive Date: 20250820
  Receipt Date: 20250820
  Transmission Date: 20251020
  Serious: Yes (Other)
  Sender: MYLAN
  Company Number: None

PATIENT
  Age: 76 Year
  Sex: Male

DRUGS (20)
  1. PANTOPRAZOLE [Suspect]
     Active Substance: PANTOPRAZOLE
     Indication: Prophylaxis
     Dates: start: 20250527, end: 20250715
  2. PANTOPRAZOLE [Suspect]
     Active Substance: PANTOPRAZOLE
     Route: 048
     Dates: start: 20250527, end: 20250715
  3. PANTOPRAZOLE [Suspect]
     Active Substance: PANTOPRAZOLE
     Route: 048
     Dates: start: 20250527, end: 20250715
  4. PANTOPRAZOLE [Suspect]
     Active Substance: PANTOPRAZOLE
     Dates: start: 20250527, end: 20250715
  5. ALFUZOSIN [Suspect]
     Active Substance: ALFUZOSIN
     Indication: Prostatic adenoma
     Dosage: 10 MILLIGRAM, QD, IN THE MORNING
     Dates: start: 20250616
  6. ALFUZOSIN [Suspect]
     Active Substance: ALFUZOSIN
     Dosage: 10 MILLIGRAM, QD, IN THE MORNING
     Route: 048
     Dates: start: 20250616
  7. ALFUZOSIN [Suspect]
     Active Substance: ALFUZOSIN
     Dosage: 10 MILLIGRAM, QD, IN THE MORNING
     Route: 048
     Dates: start: 20250616
  8. ALFUZOSIN [Suspect]
     Active Substance: ALFUZOSIN
     Dosage: 10 MILLIGRAM, QD, IN THE MORNING
     Dates: start: 20250616
  9. FOLIC ACID [Suspect]
     Active Substance: FOLIC ACID
     Indication: Anaemia folate deficiency
     Dosage: 5 MILLIGRAM, QD, IN THE MORNING
     Dates: start: 20250616
  10. FOLIC ACID [Suspect]
     Active Substance: FOLIC ACID
     Dosage: 5 MILLIGRAM, QD, IN THE MORNING
     Route: 048
     Dates: start: 20250616
  11. FOLIC ACID [Suspect]
     Active Substance: FOLIC ACID
     Dosage: 5 MILLIGRAM, QD, IN THE MORNING
     Route: 048
     Dates: start: 20250616
  12. FOLIC ACID [Suspect]
     Active Substance: FOLIC ACID
     Dosage: 5 MILLIGRAM, QD, IN THE MORNING
     Dates: start: 20250616
  13. XARELTO [Suspect]
     Active Substance: RIVAROXABAN
     Indication: Stent placement
     Dosage: 80 MILLIGRAM, BID (80 MG MORNING AND EVENING)
     Dates: start: 20250527, end: 20250715
  14. XARELTO [Suspect]
     Active Substance: RIVAROXABAN
     Dosage: 80 MILLIGRAM, BID (80 MG MORNING AND EVENING)
     Route: 048
     Dates: start: 20250527, end: 20250715
  15. XARELTO [Suspect]
     Active Substance: RIVAROXABAN
     Dosage: 80 MILLIGRAM, BID (80 MG MORNING AND EVENING)
     Route: 048
     Dates: start: 20250527, end: 20250715
  16. XARELTO [Suspect]
     Active Substance: RIVAROXABAN
     Dosage: 80 MILLIGRAM, BID (80 MG MORNING AND EVENING)
     Dates: start: 20250527, end: 20250715
  17. MELATONIN [Suspect]
     Active Substance: MELATONIN
     Indication: Sleep disorder
     Dosage: 2 MILLIGRAM, QD, AT BEDTIME
     Dates: start: 20250616
  18. MELATONIN [Suspect]
     Active Substance: MELATONIN
     Dosage: 2 MILLIGRAM, QD, AT BEDTIME
     Route: 048
     Dates: start: 20250616
  19. MELATONIN [Suspect]
     Active Substance: MELATONIN
     Dosage: 2 MILLIGRAM, QD, AT BEDTIME
     Route: 048
     Dates: start: 20250616
  20. MELATONIN [Suspect]
     Active Substance: MELATONIN
     Dosage: 2 MILLIGRAM, QD, AT BEDTIME
     Dates: start: 20250616

REACTIONS (2)
  - Thrombocytopenia [Recovered/Resolved]
  - Cholestasis [Recovered/Resolved]

NARRATIVE: CASE EVENT DATE: 20250616
